FAERS Safety Report 25872157 (Version 3)
Quarter: 2025Q4

REPORT INFORMATION
  Report Type: Report from Study
  Country: BR (occurrence: BR)
  Receive Date: 20251002
  Receipt Date: 20251203
  Transmission Date: 20260118
  Serious: Yes (Other)
  Sender: BOEHRINGER INGELHEIM
  Company Number: BR-BoehringerIngelheim-2025-BI-098380

PATIENT
  Age: 59 Year
  Sex: Female
  Weight: 72.4 kg

DRUGS (8)
  1. EMPAGLIFLOZIN\METFORMIN HYDROCHLORIDE [Suspect]
     Active Substance: EMPAGLIFLOZIN\METFORMIN HYDROCHLORIDE
     Indication: Type 2 diabetes mellitus
     Dosage: FORM STRENGTH: 12.5/850 MILLIGRAMS.?1 TABLET AT BREAKFAST AND 1 TABLET AT NIGHT.
     Dates: start: 202408
  2. EMPAGLIFLOZIN\METFORMIN HYDROCHLORIDE [Suspect]
     Active Substance: EMPAGLIFLOZIN\METFORMIN HYDROCHLORIDE
     Dosage: FORM STRENGTH: 12.5/850 (UNIT OF MEASUREMENT NOT SPECIFIED).?1 TABLET A DAY.
     Dates: start: 202408, end: 202509
  3. EMPAGLIFLOZIN\METFORMIN HYDROCHLORIDE [Suspect]
     Active Substance: EMPAGLIFLOZIN\METFORMIN HYDROCHLORIDE
     Dosage: FORM STRENGTH: 12.5/850 (UNIT OF MEASUREMENT NOT SPECIFIED).?TWO TABLETS PER DAY.
     Dates: start: 202509
  4. PURAN [Concomitant]
     Active Substance: LEVOTHYROXINE SODIUM
     Indication: Product used for unknown indication
     Dosage: 1 TABLET IN THE MORNING.
  5. Aderocal [Concomitant]
     Indication: Product used for unknown indication
     Dosage: 1 TABLET IN THE MORNING.
  6. ROSUVASTATIN CALCIUM [Concomitant]
     Active Substance: ROSUVASTATIN CALCIUM
     Indication: Product used for unknown indication
     Dosage: 1 TABLET AT NIGHT
  7. Motilex [Concomitant]
     Indication: Product used for unknown indication
     Dosage: 1 TABLET A DAY.
  8. METFORMIN HYDROCHLORIDE [Concomitant]
     Active Substance: METFORMIN HYDROCHLORIDE
     Indication: Product used for unknown indication
     Dosage: FORM STRENGTH: ?500 (UNIT OF MEASUREMENT NOT SPECIFIED).?ONE TABLET AFTER BREAKFAST AND TWO TABLETS AFTER DINNER.

REACTIONS (7)
  - Weight decreased [Not Recovered/Not Resolved]
  - Osteoporosis [Not Recovered/Not Resolved]
  - Dermatitis allergic [Recovered/Resolved]
  - Dermatitis allergic [Not Recovered/Not Resolved]
  - Osteopenia [Not Recovered/Not Resolved]
  - Off label use [Recovered/Resolved]
  - Scabies [Unknown]

NARRATIVE: CASE EVENT DATE: 20240801
